FAERS Safety Report 10555712 (Version 3)
Quarter: 2014Q4

REPORT INFORMATION
  Report Type: Spontaneous
  Country: US (occurrence: US)
  Receive Date: 20141030
  Receipt Date: 20141219
  Transmission Date: 20150529
  Serious: Yes (Other)
  Sender: FDA-Public Use
  Company Number: US-GILEAD-2014-0120461

PATIENT
  Sex: Male

DRUGS (2)
  1. OLYSIO [Concomitant]
     Active Substance: SIMEPREVIR
     Dosage: 150 MG, QD
     Route: 048
     Dates: start: 20140319, end: 20140610
  2. SOVALDI [Suspect]
     Active Substance: SOFOSBUVIR
     Indication: HEPATITIS C
     Dosage: 400 MG, QD
     Route: 048
     Dates: start: 20140319, end: 20140610

REACTIONS (3)
  - Drug ineffective [Unknown]
  - Viral load increased [Unknown]
  - Rash [Unknown]

NARRATIVE: CASE EVENT DATE: 20140707
